FAERS Safety Report 6875240-2 (Version None)
Quarter: 2010Q3

REPORT INFORMATION
  Report Type: 
  Country: None (occurrence: None)
  Receive Date: 20100727
  Receipt Date: 20100713
  Transmission Date: 20110219
  Serious: Yes (Other)
  Sender: FDA-Public Use
  Company Number: US-JNJFOC-20100703852

PATIENT
  Sex: Female

DRUGS (7)
  1. REMICADE [Suspect]
     Indication: RHEUMATOID ARTHRITIS
     Route: 042
  2. METHOTREXATE [Concomitant]
     Indication: RHEUMATOID ARTHRITIS
  3. PLAQUENIL [Concomitant]
     Indication: RHEUMATOID ARTHRITIS
  4. SAVELLA [Concomitant]
     Indication: DEPRESSION
  5. SAVELLA [Concomitant]
     Indication: PAIN
  6. SLEEPING PILL NOS [Concomitant]
     Indication: INSOMNIA
  7. LOVAZA [Concomitant]
     Indication: BLOOD CHOLESTEROL INCREASED

REACTIONS (5)
  - GAIT DISTURBANCE [None]
  - HIP SURGERY [None]
  - SKIN LACERATION [None]
  - STAPHYLOCOCCAL INFECTION [None]
  - WALKING AID USER [None]
